FAERS Safety Report 6043384-3 (Version None)
Quarter: 2009Q1

REPORT INFORMATION
  Report Type: 
  Country: None (occurrence: None)
  Receive Date: 20090115
  Receipt Date: 20081230
  Transmission Date: 20090719
  Serious: Yes (Other)
  Sender: FDA-Public Use
  Company Number: MC200800601

PATIENT
  Sex: Male

DRUGS (6)
  1. ANGIOMAX [Suspect]
     Indication: PERIPHERAL REVASCULARISATION
     Dosage: 0.75 MG/KG, BOLUS, INTRAVENOUS; 1.75 MG/KG, HR, INTRAVENOUS
     Route: 042
  2. CLOPIDOGREL [Suspect]
     Indication: PERIPHERAL REVASCULARISATION
     Dosage: 75 MG, ORAL
     Route: 048
  3. ASPIRIN [Suspect]
     Indication: PERIPHERAL REVASCULARISATION
     Dosage: 325 MG, 81 MG
  4. ACTIVASE [Suspect]
     Indication: PERIPHERAL REVASCULARISATION
     Dosage: 10 MG PER 50 ML NS, OTHER
  5. WARFARIN SODIUM [Suspect]
     Indication: ARTERIAL OCCLUSIVE DISEASE
  6. WARFARIN SODIUM [Suspect]
     Indication: DISEASE RECURRENCE

REACTIONS (3)
  - ARTERIAL THROMBOSIS [None]
  - DISEASE RECURRENCE [None]
  - GASTRIC HAEMORRHAGE [None]
